FAERS Safety Report 24336961 (Version 7)
Quarter: 2025Q3

REPORT INFORMATION
  Report Type: Report from Study
  Country: US (occurrence: US)
  Receive Date: 20240919
  Receipt Date: 20250806
  Transmission Date: 20251020
  Serious: Yes (Other)
  Sender: TAKEDA
  Company Number: US-TAKEDA-US201838188

PATIENT
  Age: 9 Year
  Sex: Male
  Weight: 45 kg

DRUGS (12)
  1. HUMAN IMMUNOGLOBULIN G [Suspect]
     Active Substance: HUMAN IMMUNOGLOBULIN G
     Indication: Primary immunodeficiency syndrome
     Dosage: 3 GRAM, 1/WEEK
  2. HUMAN IMMUNOGLOBULIN G [Suspect]
     Active Substance: HUMAN IMMUNOGLOBULIN G
     Indication: Hypergammaglobulinaemia
     Dosage: 5 GRAM, 1/WEEK
  3. HUMAN IMMUNOGLOBULIN G [Suspect]
     Active Substance: HUMAN IMMUNOGLOBULIN G
     Indication: Immune system disorder
  4. LEUCOVORIN CALCIUM [Concomitant]
     Active Substance: LEUCOVORIN CALCIUM
  5. Algal oil DHA [Concomitant]
  6. ALBUTEROL SULFATE [Concomitant]
     Active Substance: ALBUTEROL SULFATE
  7. PULMICORT TURBUHALER [Concomitant]
     Active Substance: BUDESONIDE
  8. DIPHENHYDRAMINE [Concomitant]
     Active Substance: DIPHENHYDRAMINE
  9. EPINEPHRINE [Concomitant]
     Active Substance: EPINEPHRINE
  10. ACETAMINOPHEN [Concomitant]
     Active Substance: ACETAMINOPHEN
  11. LIDOCAINE [Concomitant]
     Active Substance: LIDOCAINE
  12. VITAMINS [Concomitant]
     Active Substance: VITAMINS

REACTIONS (17)
  - Pneumonia [Unknown]
  - COVID-19 pneumonia [Unknown]
  - Sneezing [Unknown]
  - Nasopharyngitis [Unknown]
  - Obstruction [Unknown]
  - Insurance issue [Unknown]
  - Product colour issue [Unknown]
  - Skin laceration [Unknown]
  - Incorrect dose administered [Unknown]
  - Product dose omission issue [Unknown]
  - COVID-19 [Unknown]
  - Inappropriate schedule of product administration [Unknown]
  - Infection [Unknown]
  - Influenza [Unknown]
  - Abdominal pain upper [Unknown]
  - Hypersensitivity [Recovered/Resolved]
  - Pyrexia [Unknown]

NARRATIVE: CASE EVENT DATE: 20220405
